FAERS Safety Report 26150718 (Version 1)
Quarter: 2025Q4

REPORT INFORMATION
  Report Type: Spontaneous
  Country: US (occurrence: None)
  Receive Date: 20251211
  Receipt Date: 20251211
  Transmission Date: 20260117
  Serious: No
  Sender: FDA-CTU
  Company Number: None

PATIENT
  Age: 65 Year
  Sex: Female
  Weight: 81 kg

DRUGS (20)
  1. REPATHA [Suspect]
     Active Substance: EVOLOCUMAB
     Indication: Type IIa hyperlipidaemia
     Dosage: 1 INJECTION(S) EVERY TWO WEEKS INTRAMUSCULAR
     Route: 030
     Dates: start: 20220115
  2. METOPROLOL [Concomitant]
     Active Substance: METOPROLOL
  3. TRIAMTERENE [Concomitant]
     Active Substance: TRIAMTERENE
  4. PLAVIX [Concomitant]
     Active Substance: CLOPIDOGREL BISULFATE
  5. LEVOTHYROXINE [Concomitant]
     Active Substance: LEVOTHYROXINE
  6. MONTELUKAST [Concomitant]
     Active Substance: MONTELUKAST
  7. ZETIA [Concomitant]
     Active Substance: EZETIMIBE
  8. Methenamine Hipp [Concomitant]
  9. PANTOPRAZOLE [Concomitant]
     Active Substance: PANTOPRAZOLE
  10. VITAMIN E [Concomitant]
     Active Substance: .ALPHA.-TOCOPHEROL
  11. VITAMIN D NOS [Concomitant]
     Active Substance: CHOLECALCIFEROL\ERGOCALCIFEROL
  12. DEMANNOSE [Concomitant]
     Active Substance: DEMANNOSE
  13. CHOLINE [Concomitant]
     Active Substance: CHOLINE
  14. 5-HTTP [Concomitant]
  15. VITAMIN B6 [Concomitant]
     Active Substance: PYRIDOXINE HYDROCHLORIDE
  16. ARTICHOKE [Concomitant]
     Active Substance: ARTICHOKE
  17. IRON [Concomitant]
     Active Substance: IRON
  18. MAGNESIUM CITRATE [Concomitant]
     Active Substance: MAGNESIUM CITRATE
  19. POTASSIUM [Concomitant]
     Active Substance: POTASSIUM
  20. CALCIUM [Concomitant]
     Active Substance: CALCIUM

REACTIONS (10)
  - Therapy cessation [None]
  - Bone disorder [None]
  - Muscle spasms [None]
  - Movement disorder [None]
  - Muscle tightness [None]
  - Insomnia [None]
  - Primary coenzyme Q10 deficiency [None]
  - Foot deformity [None]
  - Spinal fracture [None]
  - Fall [None]

NARRATIVE: CASE EVENT DATE: 20220130
